FAERS Safety Report 10558658 (Version 2)
Quarter: 2014Q4

REPORT INFORMATION
  Report Type: Report from Study
  Country: MX (occurrence: MX)
  Receive Date: 20141031
  Receipt Date: 20141107
  Transmission Date: 20150529
  Serious: Yes (Other)
  Sender: FDA-Public Use
  Company Number: PHHY2014MX142425

PATIENT
  Age: 10 Year
  Sex: Male

DRUGS (3)
  1. RITALIN LA [Suspect]
     Active Substance: METHYLPHENIDATE HYDROCHLORIDE
     Indication: RESTLESSNESS
     Dosage: 0.5 DF (HALF CAPSULE), QD
     Route: 048
     Dates: start: 20141002, end: 20141025
  2. RITALIN LA [Suspect]
     Active Substance: METHYLPHENIDATE HYDROCHLORIDE
     Indication: TIC
     Dosage: 1 DF (1 CAPSULE), QD
     Route: 048
     Dates: start: 20141001, end: 20141002
  3. RITALIN LA [Suspect]
     Active Substance: METHYLPHENIDATE HYDROCHLORIDE
     Indication: OFF LABEL USE

REACTIONS (17)
  - Asthmatic crisis [Recovering/Resolving]
  - Tunnel vision [Recovering/Resolving]
  - Paraesthesia [Recovering/Resolving]
  - Respiratory tract congestion [Not Recovered/Not Resolved]
  - Infection parasitic [Unknown]
  - Decreased appetite [Not Recovered/Not Resolved]
  - Visual impairment [Recovering/Resolving]
  - Excessive eye blinking [Recovering/Resolving]
  - Chest pain [Not Recovered/Not Resolved]
  - Abnormal behaviour [Recovering/Resolving]
  - Wrong technique in drug usage process [Recovering/Resolving]
  - Headache [Not Recovered/Not Resolved]
  - Bronchial disorder [Recovering/Resolving]
  - Cough [Not Recovered/Not Resolved]
  - Rhinitis allergic [Recovering/Resolving]
  - Eye discharge [Not Recovered/Not Resolved]
  - Visual acuity reduced [Recovering/Resolving]

NARRATIVE: CASE EVENT DATE: 20141001
